FAERS Safety Report 12692492 (Version 2)
Quarter: 2016Q3

REPORT INFORMATION
  Report Type: Spontaneous
  Country: IT (occurrence: IT)
  Receive Date: 20160829
  Receipt Date: 20160919
  Transmission Date: 20161109
  Serious: Yes (Other)
  Sender: FDA-Public Use
  Company Number: IT-CIPLA LTD.-2016IT17590

PATIENT

DRUGS (7)
  1. ZIDOVUDINE. [Suspect]
     Active Substance: ZIDOVUDINE
     Indication: HIV INFECTION
     Dosage: 2 MG/KG, EVERY 6 HOURS AT 24 HRS OF AGE
     Route: 065
  2. RALTEGRAVIR. [Suspect]
     Active Substance: RALTEGRAVIR
     Indication: HIV INFECTION
     Dosage: 6 MG/KG, BID, GIVEN AS A POWDER TO BE SUSPENDED IN WATER AND PREPARED FROM 400 MG TABLETS
     Route: 048
  3. LOPINAVIR/RITONAVIR [Suspect]
     Active Substance: LOPINAVIR\RITONAVIR
     Indication: HIV INFECTION
     Dosage: 16 MG/KG, BID, 48 HOURS AFTER BIRTH
     Route: 065
  4. NEVIRAPINE. [Suspect]
     Active Substance: NEVIRAPINE
     Indication: HIV INFECTION
     Dosage: 200 MG/M2, (AT DAY 16)
     Route: 065
  5. LAMIVUDINE. [Suspect]
     Active Substance: LAMIVUDINE
     Indication: HIV INFECTION
     Dosage: 2 MG/KG, BID
     Route: 065
  6. ZIDOVUDINE. [Suspect]
     Active Substance: ZIDOVUDINE
     Dosage: 4 MG/KG, AT 48 HOURS OF AGE
     Route: 065
  7. ABACAVIR. [Suspect]
     Active Substance: ABACAVIR
     Indication: HIV INFECTION
     Dosage: 8 MG/KG, BID (AT DAY 8)
     Route: 065

REACTIONS (3)
  - Gamma-glutamyltransferase increased [Recovered/Resolved]
  - Hypotonia [Unknown]
  - Vomiting [Recovered/Resolved]
